FAERS Safety Report 5774328-7 (Version None)
Quarter: 2008Q2

REPORT INFORMATION
  Report Type: 
  Country: None (occurrence: None)
  Receive Date: 20080616
  Receipt Date: 20080605
  Transmission Date: 20081010
  Serious: Yes (Hospitalization)
  Sender: FDA-Public Use
  Company Number: PHEH2008US05091

PATIENT
  Sex: Male
  Weight: 86.168 kg

DRUGS (3)
  1. MYCOPHENOLIC ACID [Suspect]
     Indication: BALANCE DISORDER
     Dosage: UNK
     Dates: start: 20080401
  2. REBIF [Concomitant]
     Indication: MULTIPLE SCLEROSIS
     Dosage: 44 UG, TIW
     Route: 058
     Dates: start: 20050608
  3. CITALOPRAM HYDROBROMIDE [Concomitant]
     Indication: URINARY TRACT DISORDER

REACTIONS (2)
  - CIRCULATORY COLLAPSE [None]
  - MUSCULAR WEAKNESS [None]
